FAERS Safety Report 21471183 (Version 1)
Quarter: 2022Q4

REPORT INFORMATION
  Report Type: Report from Study
  Country: US (occurrence: US)
  Receive Date: 20221018
  Receipt Date: 20221018
  Transmission Date: 20230113
  Serious: No
  Sender: FDA-Public Use
  Company Number: US-ABBVIE-4154287

PATIENT
  Age: 18 Year
  Sex: Male

DRUGS (1)
  1. SKYRIZI [Suspect]
     Active Substance: RISANKIZUMAB-RZAA
     Indication: Guttate psoriasis
     Dosage: WEEK0 WEEK 4, EVERY 12 WEEKS?FORM STRENGTH: 150 MILLIGRAMS
     Route: 058
     Dates: start: 20211217

REACTIONS (3)
  - Off label use [Unknown]
  - Therapeutic response shortened [Unknown]
  - Psoriasis [Unknown]

NARRATIVE: CASE EVENT DATE: 20211217
